FAERS Safety Report 21885548 (Version 2)
Quarter: 2024Q1

REPORT INFORMATION
  Report Type: Report from Study
  Country: DE (occurrence: DE)
  Receive Date: 20230119
  Receipt Date: 20240326
  Transmission Date: 20240410
  Serious: Yes (Hospitalization)
  Sender: FDA-Public Use
  Company Number: DE-002147023-NVSC2022DE186129

PATIENT
  Sex: Male

DRUGS (2)
  1. CELECOXIB [Suspect]
     Active Substance: CELECOXIB
     Indication: Axial spondyloarthritis
     Dosage: 50 MG, QW (1 DAY PER WEEK)
     Route: 065
     Dates: start: 20220115, end: 20221215
  2. COSENTYX [Suspect]
     Active Substance: SECUKINUMAB
     Indication: Axial spondyloarthritis
     Dosage: MONTHLY(300 MG, QMO (EVERY 4 WEEKS))
     Route: 042
     Dates: start: 20210218

REACTIONS (6)
  - Depression [Recovered/Resolved]
  - Borderline personality disorder [Unknown]
  - Tendon disorder [Unknown]
  - Chondropathy [Unknown]
  - Psoriasis [Unknown]
  - Sinusitis [Unknown]

NARRATIVE: CASE EVENT DATE: 20211103
